FAERS Safety Report 8947864 (Version 1)
Quarter: 2012Q4

REPORT INFORMATION
  Report Type: 
  Country: US (occurrence: US)
  Receive Date: 20121204
  Receipt Date: 20121204
  Transmission Date: 20130627
  Serious: Yes (Other)
  Sender: FDA-Public Use
  Company Number: US-PFIZER INC-2012303373

PATIENT
  Age: 60 Year
  Sex: Female
  Weight: 113 kg

DRUGS (2)
  1. NEURONTIN [Suspect]
     Indication: MUSCULOSKELETAL DISORDER
     Dosage: 3000 mg, daily
  2. METFORMIN [Concomitant]
     Indication: DIABETES
     Dosage: 850 mg, 2x/day

REACTIONS (3)
  - Physical disability [Not Recovered/Not Resolved]
  - Diabetes mellitus [Not Recovered/Not Resolved]
  - Weight increased [Unknown]
